FAERS Safety Report 7135817-6 (Version None)
Quarter: 2010Q4

REPORT INFORMATION
  Report Type: 
  Country: None (occurrence: None)
  Receive Date: 20101203
  Receipt Date: 20101124
  Transmission Date: 20110411
  Serious: Yes (Hospitalization, Other)
  Sender: FDA-Public Use
  Company Number: AU-AMGEN-QUU436243

PATIENT

DRUGS (4)
  1. NEULASTA [Suspect]
     Indication: CHEMOTHERAPY
     Dosage: 6 MG, QD
     Route: 058
     Dates: start: 20100816
  2. EPIRUBICIN [Suspect]
     Dosage: UNK UNK, UNK
     Dates: start: 20100414, end: 20100812
  3. CYCLOPHOSPHAMIDE [Suspect]
     Dosage: UNK UNK, UNK
     Dates: start: 20100414, end: 20100812
  4. UNSPECIFIED ANTINEOPLASTIC AGENT [Concomitant]

REACTIONS (6)
  - ASTHENIA [None]
  - DRUG INEFFECTIVE [None]
  - LEUKOPENIA [None]
  - MALAISE [None]
  - NEUTROPENIA [None]
  - THROMBOCYTOPENIA [None]
